FAERS Safety Report 8241538-9 (Version None)
Quarter: 2012Q1

REPORT INFORMATION
  Report Type: 
  Country: None (occurrence: None)
  Receive Date: 20120328
  Receipt Date: 20120321
  Transmission Date: 20120608
  Serious: Yes (Hospitalization)
  Sender: FDA-Public Use
  Company Number: US-ROCHE-1045124

PATIENT
  Age: 73 Year
  Sex: Female
  Weight: 64.55 kg

DRUGS (6)
  1. AVASTIN [Suspect]
     Dosage: DOSE REDUCED  DUE TO 10% DECREASE IN BSA
  2. IXABEPILONE [Suspect]
     Indication: ENDOMETRIAL CANCER RECURRENT
     Dosage: OVER 1 HOUR ON DAY 1.DATE OF LAST DOSE PRIOR TO SAE: 28/DEC/2011
     Route: 042
     Dates: start: 20111104
  3. AVASTIN [Suspect]
     Indication: ENDOMETRIAL CANCER RECURRENT
     Dosage: OVER 30-90 MINUTES ON DAY 1.DATE OF LAST DOSE PRIOR TO SAE: 28/DEC/2011
     Route: 042
     Dates: start: 20111104
  4. CARBOPLATIN [Suspect]
     Indication: ENDOMETRIAL CANCER RECURRENT
     Dosage: ON DAY 1. DATE OF LAST DOSE PRIOR TO SAE: 28/DEC/2011
     Route: 042
     Dates: start: 20111104
  5. IXABEPILONE [Suspect]
     Dosage: DOSE REDUCED  DUE TO 10% DECREASE IN BSA
  6. CARBOPLATIN [Suspect]
     Dosage: DOSE REDUCED  DUE TO 10% DECREASE IN BSA

REACTIONS (7)
  - VOMITING [None]
  - CONSTIPATION [None]
  - NEUTROPHIL COUNT DECREASED [None]
  - BLOOD BILIRUBIN INCREASED [None]
  - NAUSEA [None]
  - WHITE BLOOD CELL COUNT DECREASED [None]
  - ABDOMINAL PAIN [None]
